FAERS Safety Report 7548597-7 (Version None)
Quarter: 2011Q2

REPORT INFORMATION
  Report Type: 
  Country: None (occurrence: None)
  Receive Date: 20110615
  Receipt Date: 20110606
  Transmission Date: 20111010
  Serious: Yes (Life-Threatening, Hospitalization)
  Sender: FDA-Public Use
  Company Number: IT-BRISTOL-MYERS SQUIBB COMPANY-15805625

PATIENT
  Age: 54 Year
  Sex: Female

DRUGS (7)
  1. METFORMIN HCL [Suspect]
  2. VALERIAN [Suspect]
  3. SENNA-MINT WAF [Suspect]
  4. CASCARA TAB [Suspect]
  5. FLUOXETINE HCL [Suspect]
  6. BENFLUOREX [Suspect]
  7. PANCREATIN [Suspect]

REACTIONS (2)
  - VENTRICULAR FIBRILLATION [None]
  - CARDIAC ARREST [None]
